FAERS Safety Report 19180097 (Version 2)
Quarter: 2021Q4

REPORT INFORMATION
  Report Type: Spontaneous
  Country: CN (occurrence: None)
  Receive Date: 20210426
  Receipt Date: 20211118
  Transmission Date: 20220303
  Serious: Yes (Other)
  Sender: FDA-Public Use
  Company Number: CN-ROCHE-2811823

PATIENT
  Age: 77 Year
  Sex: Female

DRUGS (4)
  1. MABTHERA [Suspect]
     Active Substance: RITUXIMAB
     Indication: Follicular lymphoma
     Dosage: R2, 11 NOV 2020, 3 DEC 2020, 25 DEC 2020, 18 FEB 2021, DAY 0
     Route: 065
  2. MABTHERA [Suspect]
     Active Substance: RITUXIMAB
     Dosage: BR,  DAY 0
     Route: 065
     Dates: start: 20210318
  3. LENALIDOMIDE [Concomitant]
     Active Substance: LENALIDOMIDE
     Indication: Follicular lymphoma
     Dosage: R2, 11 NOV 2020, 3 DEC 2020, 25 DEC 2020, 18 FEB 2021, 25 MG ON DAY 1 TO DAY 21 (CYCLE 1 TO CYCLE 3)
  4. BENDAMUSTINE [Concomitant]
     Active Substance: BENDAMUSTINE
     Indication: Follicular lymphoma
     Dosage: BR, DAY 1-DAY 2
     Dates: start: 20210318

REACTIONS (6)
  - Haematemesis [Unknown]
  - Rash [Unknown]
  - Pruritus [Unknown]
  - Infection [Unknown]
  - Myelosuppression [Unknown]
  - Pyrexia [Recovered/Resolved]
